FAERS Safety Report 20817143 (Version 1)
Quarter: 2022Q2

REPORT INFORMATION
  Report Type: Report from Study
  Country: US (occurrence: None)
  Receive Date: 20220512
  Receipt Date: 20220512
  Transmission Date: 20220721
  Serious: Yes (Hospitalization)
  Sender: FDA-Public Use
  Company Number: US-ROCHE-CID000000002129713

PATIENT
  Age: 57 Year
  Sex: Female
  Weight: 44.5 kg

DRUGS (6)
  1. BEVACIZUMAB [Suspect]
     Active Substance: BEVACIZUMAB
     Indication: Invasive breast carcinoma
     Dosage: DATE OF LAST DOSE PRIOR TO SAE: 18/SEP/2012
     Dates: start: 20100618
  2. LETROZOLE [Suspect]
     Active Substance: LETROZOLE
     Indication: Invasive breast carcinoma
     Dosage: DATE OF LAST DOSE PRIOR TO SAE: 27/SEP/2012
     Route: 048
     Dates: start: 20100618
  3. ALBUTEROL [Concomitant]
     Active Substance: ALBUTEROL
  4. CELEBREX [Concomitant]
     Active Substance: CELECOXIB
  5. DULERA [Concomitant]
     Active Substance: FORMOTEROL FUMARATE DIHYDRATE\MOMETASONE FUROATE
  6. TRAZODONE [Concomitant]
     Active Substance: TRAZODONE HYDROCHLORIDE

REACTIONS (3)
  - Small intestinal obstruction [Recovered/Resolved]
  - Gastritis [Recovered/Resolved]
  - Anastomotic complication [Recovered/Resolved]

NARRATIVE: CASE EVENT DATE: 20120927
